FAERS Safety Report 7327142-5 (Version None)
Quarter: 2011Q1

REPORT INFORMATION
  Report Type: 
  Country: None (occurrence: None)
  Receive Date: 20110302
  Receipt Date: 20110225
  Transmission Date: 20110831
  Serious: Yes (Other)
  Sender: FDA-Public Use
  Company Number: AU-PFIZER INC-2011043364

PATIENT
  Age: 65 Year
  Sex: Female

DRUGS (6)
  1. MESASAL [Concomitant]
     Dosage: TWO DOSES THREE TIMES DAILY
  2. PREDNISONE [Concomitant]
     Dosage: 7 MG, UNK
  3. PREDNISONE [Concomitant]
     Dosage: 10 MG, UNK
  4. BETALOC [Concomitant]
     Dosage: HALF DOSE, TWICE DAILY
  5. LIPITOR [Suspect]
     Dosage: 10 MG, UNK
  6. METHOTREXATE [Concomitant]
     Dosage: 10 MG, UNK

REACTIONS (3)
  - BLOOD CHOLESTEROL INCREASED [None]
  - GAMMA-GLUTAMYLTRANSFERASE INCREASED [None]
  - LIVER FUNCTION TEST ABNORMAL [None]
